FAERS Safety Report 6411632-3 (Version None)
Quarter: 2009Q4

REPORT INFORMATION
  Report Type: 
  Country: None (occurrence: None)
  Receive Date: 20091023
  Receipt Date: 20091013
  Transmission Date: 20100525
  Serious: Yes (Death)
  Sender: FDA-Public Use
  Company Number: JP-ROCHE-362974

PATIENT
  Sex: Male

DRUGS (10)
  1. CELLCEPT [Suspect]
     Route: 048
     Dates: start: 20000304, end: 20040129
  2. PROGRAF [Suspect]
     Route: 048
     Dates: start: 19990711, end: 20040209
  3. PREDNISOLONE [Suspect]
     Route: 048
     Dates: start: 19990713, end: 20040130
  4. SOLU-MEDROL [Suspect]
     Indication: KIDNEY TRANSPLANT REJECTION
     Route: 041
  5. ORTHOCLONE OKT3 [Suspect]
     Indication: KIDNEY TRANSPLANT REJECTION
     Route: 042
  6. SPANIDIN [Suspect]
     Indication: KIDNEY TRANSPLANT REJECTION
     Route: 041
  7. NEORAL [Concomitant]
     Route: 048
     Dates: start: 20040221, end: 20040228
  8. BLOPRESS [Concomitant]
     Route: 048
  9. NORVASC [Concomitant]
     Route: 048
  10. KOLANTYL [Concomitant]
     Route: 048

REACTIONS (1)
  - EPSTEIN-BARR VIRUS ASSOCIATED LYMPHOPROLIFERATIVE DISORDER [None]
